FAERS Safety Report 15791396 (Version 1)
Quarter: 2019Q1

REPORT INFORMATION
  Report Type: Spontaneous
  Country: US (occurrence: US)
  Receive Date: 20190104
  Receipt Date: 20190104
  Transmission Date: 20190417
  Serious: Yes (Disabling)
  Sender: FDA-Public Use
  Company Number: None

PATIENT
  Age: 67 Year
  Sex: Female
  Weight: 67.5 kg

DRUGS (1)
  1. CLOPIDOGREL 75 MG TABLETS [Suspect]
     Active Substance: CLOPIDOGREL BISULFATE
     Indication: THROMBOSIS PROPHYLAXIS
     Dosage: ?          QUANTITY:30 TABLET(S);?
     Route: 048
     Dates: start: 20181126, end: 20181226

REACTIONS (5)
  - Blood pressure increased [None]
  - Throat irritation [None]
  - Product substitution issue [None]
  - Heart rate increased [None]
  - Speech disorder [None]

NARRATIVE: CASE EVENT DATE: 20181126
